FAERS Safety Report 9218079 (Version 2)
Quarter: 2013Q2

REPORT INFORMATION
  Report Type: Spontaneous
  Country: US (occurrence: US)
  Receive Date: 20130408
  Receipt Date: 20130514
  Transmission Date: 20140414
  Serious: Yes (Death)
  Sender: FDA-Public Use
  Company Number: US-GLAXOSMITHKLINE-A1019116A

PATIENT
  Age: 63 Year
  Sex: Male

DRUGS (7)
  1. HYCAMTIN [Suspect]
     Indication: BRONCHIAL CARCINOMA
     Dosage: 4MG PER DAY
     Route: 048
     Dates: start: 20130227, end: 20130315
  2. ADVAIR [Concomitant]
     Indication: CHRONIC OBSTRUCTIVE PULMONARY DISEASE
     Dates: start: 201210
  3. VICODIN [Concomitant]
     Indication: PAIN
     Route: 048
     Dates: start: 20121016
  4. FLUCONAZOLE [Concomitant]
     Indication: MENINGITIS CRYPTOCOCCAL
     Dosage: 200MG PER DAY
     Dates: start: 2013
  5. DEXAMETHASONE [Concomitant]
     Indication: METASTASES TO CENTRAL NERVOUS SYSTEM
     Dosage: 4MG TWICE PER DAY
     Route: 048
     Dates: start: 20130202
  6. HCTZ [Concomitant]
     Route: 048
     Dates: start: 201210
  7. MS CONTIN [Concomitant]
     Indication: PAIN
     Dosage: 15MG TWICE PER DAY
     Route: 048
     Dates: start: 20130208

REACTIONS (1)
  - Small cell lung cancer [Fatal]
